FAERS Safety Report 8543703-X (Version None)
Quarter: 2012Q3

REPORT INFORMATION
  Report Type: 
  Country: None (occurrence: None)
  Receive Date: 20120727
  Receipt Date: 20120724
  Transmission Date: 20120928
  Serious: No
  Sender: FDA-Public Use
  Company Number: US-PFIZER INC-2012179310

PATIENT
  Sex: Female
  Weight: 63.039 kg

DRUGS (4)
  1. DETROL LA [Suspect]
     Indication: BLADDER DISORDER
     Dosage: UNK
  2. LYRICA [Suspect]
     Indication: BACK DISORDER
  3. LYRICA [Suspect]
     Indication: LIMB DISCOMFORT
  4. LYRICA [Suspect]
     Indication: NERVOUS SYSTEM DISORDER
     Dosage: 150 MG, 2X/DAY

REACTIONS (1)
  - FATIGUE [None]
